FAERS Safety Report 7420201-8 (Version None)
Quarter: 2011Q2

REPORT INFORMATION
  Report Type: 
  Country: None (occurrence: None)
  Receive Date: 20110407
  Receipt Date: 20110316
  Transmission Date: 20111010
  Serious: Yes (Hospitalization)
  Sender: FDA-Public Use
  Company Number: 2010SP052257

PATIENT
  Age: 47 Year
  Sex: Female
  Weight: 63 kg

DRUGS (20)
  1. DEXAMETHASONE [Concomitant]
  2. OMEPRAZOLE [Concomitant]
  3. GAVISCON [Concomitant]
  4. AMITRIPTLINE HYDROCHLORIDE TAB [Concomitant]
  5. HYOSCINE HBR HYT [Concomitant]
  6. TEMOZOLOMIDE [Suspect]
     Indication: OVARIAN CANCER
     Dosage: PO
     Route: 048
     Dates: start: 20100810, end: 20100912
  7. ABT-888 (INVESTIGATIONAL DRUG) [Suspect]
     Indication: OVARIAN CANCER
     Dosage: 40 MG; BID; PO
     Route: 048
     Dates: start: 20100810, end: 20100912
  8. SENNA ALEXANDRIA [Concomitant]
  9. ONDANSETRON [Concomitant]
  10. PARACETAMOL [Concomitant]
  11. DOMPERIDONE [Concomitant]
  12. POLYETHYL. GLYC. W/POTAS. CHLOR./SOD. BICARD. [Concomitant]
  13. MAG-LAX [Concomitant]
  14. ENEMA [Concomitant]
  15. CYCLIZINE [Concomitant]
  16. IBUPROFEN [Concomitant]
  17. CYCLIZINE [Concomitant]
  18. GLYCEROL 2.6% [Concomitant]
  19. ZOPICLONE [Concomitant]
  20. ONDANSETRON [Concomitant]

REACTIONS (13)
  - CONSTIPATION [None]
  - FATIGUE [None]
  - ABDOMINAL PAIN [None]
  - HYPOKALAEMIA [None]
  - DECREASED APPETITE [None]
  - GASTRITIS [None]
  - BLOOD SODIUM DECREASED [None]
  - NEUTROPHIL COUNT DECREASED [None]
  - WHITE BLOOD CELL COUNT DECREASED [None]
  - PALPITATIONS [None]
  - VOMITING [None]
  - NAUSEA [None]
  - DYSPNOEA [None]
